FAERS Safety Report 7226926-1 (Version None)
Quarter: 2011Q1

REPORT INFORMATION
  Report Type: 
  Country: None (occurrence: None)
  Receive Date: 20110111
  Receipt Date: 20110111
  Transmission Date: 20110831
  Serious: No
  Sender: FDA-Public Use
  Company Number: None

PATIENT
  Sex: Female
  Weight: 66.6788 kg

DRUGS (1)
  1. PROPOXYPHENE HCL [Suspect]
     Indication: HEADACHE
     Dosage: 1 EVERY 6 HRS

REACTIONS (6)
  - FALL [None]
  - SKIN DISCOLOURATION [None]
  - LACERATION [None]
  - BLINDNESS UNILATERAL [None]
  - LOSS OF CONSCIOUSNESS [None]
  - PAIN [None]
